FAERS Safety Report 6864316-1 (Version None)
Quarter: 2010Q3

REPORT INFORMATION
  Report Type: 
  Country: None (occurrence: None)
  Receive Date: 20100720
  Receipt Date: 20100709
  Transmission Date: 20110219
  Serious: Yes (Hospitalization)
  Sender: FDA-Public Use
  Company Number: 2010US002704

PATIENT
  Age: 24 Year
  Sex: Female
  Weight: 48 kg

DRUGS (4)
  1. PROGRAF [Suspect]
     Indication: RENAL TRANSPLANT
     Dosage: 8 MG, BID, ORAL
     Route: 048
     Dates: start: 19990729
  2. CELLCEPT [Concomitant]
  3. LYRICA [Concomitant]
  4. DARVOCET-N (DEXTROPROPOXYPHENE NAPSILATE, PARACETAMOL) [Concomitant]

REACTIONS (12)
  - CERVICAL VERTEBRAL FRACTURE [None]
  - CLAVICLE FRACTURE [None]
  - COLLAPSE OF LUNG [None]
  - COMA [None]
  - LIMB INJURY [None]
  - LOWER LIMB FRACTURE [None]
  - MEMORY IMPAIRMENT [None]
  - MULTIPLE INJURIES [None]
  - RIB FRACTURE [None]
  - ROAD TRAFFIC ACCIDENT [None]
  - THERMAL BURN [None]
  - UPPER LIMB FRACTURE [None]
